FAERS Safety Report 6412388-0 (Version None)
Quarter: 2009Q4

REPORT INFORMATION
  Report Type: 
  Country: None (occurrence: None)
  Receive Date: 20091023
  Receipt Date: 20091016
  Transmission Date: 20100525
  Serious: Yes (Other)
  Sender: FDA-Public Use
  Company Number: CHPA2009US20586

PATIENT
  Age: 44 Year
  Sex: Female
  Weight: 72.562 kg

DRUGS (2)
  1. SLOW FE IRON TABLETS (NCH) [Suspect]
     Indication: MINERAL SUPPLEMENTATION
     Dosage: 2 TABLETS A DAY
     Route: 048
  2. LIPITOR [Concomitant]
     Indication: BLOOD CHOLESTEROL
     Dosage: 10 MG, UNK

REACTIONS (2)
  - HYPERTENSION [None]
  - HYSTERECTOMY [None]
